FAERS Safety Report 9580213 (Version 1)
Quarter: 2013Q3

REPORT INFORMATION
  Report Type: Spontaneous
  Country: US (occurrence: None)
  Receive Date: 20130916
  Receipt Date: 20130916
  Transmission Date: 20140515
  Serious: Yes (Other)
  Sender: FDA-Public Use
  Company Number: JPI-P-029857

PATIENT
  Age: 69 Year
  Sex: Male
  Weight: 88.45 kg

DRUGS (8)
  1. XYREM [Suspect]
     Indication: SLEEP DISORDER
     Route: 048
     Dates: start: 201212
  2. DIGOXIN [Concomitant]
  3. FENOFIBRATE [Concomitant]
  4. ATORVASTATIN CALCIUM [Concomitant]
  5. LISINOPRIL [Concomitant]
  6. DABIGATRAN ETEXILATE MESYLATE [Concomitant]
  7. DRONEDARONE [Concomitant]
  8. METOPROLOL TARTRATE [Concomitant]

REACTIONS (1)
  - Oxygen saturation decreased [None]
